FAERS Safety Report 9236996 (Version 2)
Quarter: 2013Q3

REPORT INFORMATION
  Report Type: Spontaneous
  Country: FR (occurrence: FR)
  Receive Date: 20130417
  Receipt Date: 20130913
  Transmission Date: 20140515
  Serious: Yes (Other)
  Sender: FDA-Public Use
  Company Number: FR-ASTRAZENECA-2013SE16338

PATIENT
  Age: 15465 Day
  Sex: Female

DRUGS (13)
  1. XEROQUEL [Suspect]
     Indication: SCHIZOPHRENIA, PARANOID TYPE
     Route: 048
     Dates: start: 20120229, end: 20121007
  2. XEROQUEL [Suspect]
     Indication: SCHIZOPHRENIA, PARANOID TYPE
     Route: 048
     Dates: start: 20121008, end: 20121119
  3. XEROQUEL [Suspect]
     Indication: SCHIZOPHRENIA, PARANOID TYPE
     Route: 048
     Dates: start: 20121119, end: 20121126
  4. NOZINAN [Concomitant]
     Route: 048
  5. VALIUM [Concomitant]
  6. HAVLANE [Concomitant]
  7. PARKINANE [Concomitant]
  8. PROZAC [Concomitant]
     Route: 048
  9. ZOLPIDEM [Concomitant]
     Route: 048
     Dates: start: 20121008
  10. ARTISIAL [Concomitant]
     Route: 002
     Dates: start: 20120328, end: 20121205
  11. LAROXYL [Concomitant]
     Route: 048
     Dates: start: 20120502
  12. MOPRAL [Concomitant]
     Route: 048
     Dates: start: 20121008
  13. NORMACOL [Concomitant]
     Indication: CONSTIPATION
     Route: 054
     Dates: start: 20120328

REACTIONS (3)
  - Lymphopenia [Recovered/Resolved]
  - Neutropenia [Recovered/Resolved]
  - Leukopenia [Recovered/Resolved]
